FAERS Safety Report 23651919 (Version 1)
Quarter: 2024Q1

REPORT INFORMATION
  Report Type: Spontaneous
  Country: US (occurrence: US)
  Receive Date: 20240320
  Receipt Date: 20240320
  Transmission Date: 20240409
  Serious: No
  Sender: FDA-Public Use
  Company Number: US-ELI_LILLY_AND_COMPANY-US202403010619

PATIENT
  Age: 58 Year
  Sex: Female

DRUGS (3)
  1. EMGALITY [Suspect]
     Active Substance: GALCANEZUMAB-GNLM
     Indication: Product used for unknown indication
     Dosage: 240 MG, SINGLE (LOADIG DOSE)
     Route: 065
  2. TOPIRAMATE [Concomitant]
     Active Substance: TOPIRAMATE
     Indication: Migraine
  3. TOPIRAMATE [Concomitant]
     Active Substance: TOPIRAMATE
     Indication: Cluster headache

REACTIONS (2)
  - Underdose [Unknown]
  - Injection site haemorrhage [Unknown]
